FAERS Safety Report 24050110 (Version 1)
Quarter: 2024Q3

REPORT INFORMATION
  Report Type: Spontaneous
  Country: US (occurrence: US)
  Receive Date: 20240704
  Receipt Date: 20240704
  Transmission Date: 20241017
  Serious: Yes (Other)
  Sender: LEO PHARM
  Company Number: US-LEO Pharma-371662

PATIENT
  Age: 71 Year
  Sex: Female

DRUGS (1)
  1. ADBRY [Suspect]
     Active Substance: TRALOKINUMAB-LDRM
     Indication: Dermatitis atopic
     Route: 058
     Dates: start: 202308

REACTIONS (3)
  - Photophobia [Unknown]
  - Vision blurred [Unknown]
  - Cataract operation [Unknown]

NARRATIVE: CASE EVENT DATE: 20231001
